APPROVED DRUG PRODUCT: TRIAMCINOLONE ACETONIDE
Active Ingredient: TRIAMCINOLONE ACETONIDE
Strength: 0.1%
Dosage Form/Route: OINTMENT;TOPICAL
Application: A208320 | Product #001
Applicant: GLENMARK SPECIALTY SA
Approved: Aug 22, 2017 | RLD: No | RS: No | Type: DISCN